FAERS Safety Report 14741503 (Version 2)
Quarter: 2018Q2

REPORT INFORMATION
  Report Type: Spontaneous
  Country: GB (occurrence: GB)
  Receive Date: 20180410
  Receipt Date: 20180517
  Transmission Date: 20180711
  Serious: Yes (Hospitalization)
  Sender: FDA-Public Use
  Company Number: GB-MYLANLABS-2018M1022917

PATIENT
  Sex: Male

DRUGS (1)
  1. CLOZARIL [Suspect]
     Active Substance: CLOZAPINE
     Indication: SCHIZOPHRENIA
     Dosage: UNK
     Route: 048
     Dates: start: 19990303

REACTIONS (6)
  - Fall [Unknown]
  - Drug dose omission [Recovered/Resolved]
  - Subdural haematoma [Unknown]
  - Infection [Unknown]
  - Foot fracture [Unknown]
  - Dysarthria [Unknown]

NARRATIVE: CASE EVENT DATE: 2018
